FAERS Safety Report 6413608-9 (Version None)
Quarter: 2009Q4

REPORT INFORMATION
  Report Type: 
  Country: None (occurrence: None)
  Receive Date: 20091023
  Receipt Date: 20091023
  Transmission Date: 20100525
  Serious: Yes (Other)
  Sender: FDA-Public Use
  Company Number: None

PATIENT
  Sex: Female
  Weight: 79 kg

DRUGS (1)
  1. TAMIFLU [Suspect]
     Indication: INFLUENZA LIKE ILLNESS
     Dosage: 75MG BID PO
     Route: 048
     Dates: start: 20091021, end: 20091022

REACTIONS (4)
  - ANXIETY [None]
  - HALLUCINATION [None]
  - MENTAL STATUS CHANGES [None]
  - PARANOIA [None]
